FAERS Safety Report 22358324 (Version 1)
Quarter: 2023Q2

REPORT INFORMATION
  Report Type: Spontaneous
  Country: US (occurrence: US)
  Receive Date: 20230524
  Receipt Date: 20230524
  Transmission Date: 20230721
  Serious: No
  Sender: FDA-Public Use
  Company Number: US-BTGSP-US-BTGSP-22-0064

PATIENT
  Sex: Male

DRUGS (3)
  1. VORAXAZE [Suspect]
     Active Substance: GLUCARPIDASE
     Indication: Toxicity to various agents
     Dosage: UNK
     Route: 065
     Dates: start: 20220522
  2. VORAXAZE [Suspect]
     Active Substance: GLUCARPIDASE
     Dosage: UNK (4 VIALS TOTAL)
     Route: 065
     Dates: start: 20220525
  3. METHOTREXATE [Concomitant]
     Active Substance: METHOTREXATE
     Indication: Product used for unknown indication
     Dosage: UNK
     Route: 065

REACTIONS (1)
  - Off label use [Unknown]

NARRATIVE: CASE EVENT DATE: 20220525
